FAERS Safety Report 20739519 (Version 2)
Quarter: 2022Q2

REPORT INFORMATION
  Report Type: Report from Study
  Country: DZ (occurrence: None)
  Receive Date: 20220422
  Receipt Date: 20220521
  Transmission Date: 20220720
  Serious: Yes (Death, Other)
  Sender: FDA-Public Use
  Company Number: DZ-Merck Healthcare KGaA-9314759

PATIENT
  Age: 48 Year
  Sex: Male

DRUGS (1)
  1. REBIF [Suspect]
     Active Substance: INTERFERON BETA-1A
     Indication: Multiple sclerosis
     Route: 058
     Dates: start: 20171107

REACTIONS (3)
  - Multiple sclerosis [Fatal]
  - General physical health deterioration [Fatal]
  - Arteriosclerosis [Unknown]
